FAERS Safety Report 4523928-0 (Version None)
Quarter: 2004Q4

REPORT INFORMATION
  Report Type: 
  Country: None (occurrence: None)
  Receive Date: 20041209
  Receipt Date: 20041122
  Transmission Date: 20050328
  Serious: Yes (Life-Threatening, Hospitalization, Disabling)
  Sender: FDA-Public Use
  Company Number: 9310

PATIENT
  Age: 57 Year
  Sex: Female

DRUGS (6)
  1. CARBOPLATIN [Suspect]
     Indication: OVARIAN CANCER
     Dosage: IV
     Route: 042
     Dates: start: 20010501, end: 20011001
  2. CARBOPLATIN [Suspect]
     Indication: OVARIAN CANCER
     Dosage: IV
     Route: 042
     Dates: start: 20020601, end: 20021101
  3. CARBOPLATIN [Suspect]
     Indication: OVARIAN CANCER
     Dosage: IV
     Route: 042
     Dates: start: 20040101, end: 20040101
  4. EPOETIN ALFA [Suspect]
     Dosage: 40000 IU FREQ SC
     Route: 058
     Dates: start: 20020601, end: 20021101
  5. TAMOXIFEN CITRATE [Concomitant]
  6. PACLITAXEL [Concomitant]

REACTIONS (1)
  - REFRACTORY ANAEMIA WITH AN EXCESS OF BLASTS [None]
